FAERS Safety Report 21343628 (Version 2)
Quarter: 2022Q4

REPORT INFORMATION
  Report Type: Spontaneous
  Country: US (occurrence: US)
  Receive Date: 20220916
  Receipt Date: 20221102
  Transmission Date: 20230113
  Serious: No
  Sender: FDA-Public Use
  Company Number: US-BIOGEN-2022BI01155580

PATIENT
  Sex: Male

DRUGS (1)
  1. TECFIDERA [Suspect]
     Active Substance: DIMETHYL FUMARATE
     Indication: Product used for unknown indication
     Route: 050

REACTIONS (5)
  - Balance disorder [Unknown]
  - Ear infection [Unknown]
  - Respiratory tract infection [Unknown]
  - Dehydration [Unknown]
  - Fall [Recovered/Resolved]
